FAERS Safety Report 17114896 (Version 1)
Quarter: 2019Q4

REPORT INFORMATION
  Report Type: Spontaneous
  Country: US (occurrence: US)
  Receive Date: 20191203
  Receipt Date: 20191203
  Transmission Date: 20200122
  Serious: Yes (Hospitalization)
  Sender: FDA-Public Use
  Company Number: None

PATIENT
  Age: 73 Year
  Sex: Female

DRUGS (17)
  1. ENOXAPARIN 300MG / 3 ML [Suspect]
     Active Substance: ENOXAPARIN
     Indication: EMBOLISM VENOUS
     Dosage: ?          OTHER DOSE:1.2ML (120MG) ;?
     Route: 058
     Dates: start: 20160126
  2. MAGNESIUM [Concomitant]
     Active Substance: MAGNESIUM
  3. ENOXAPARIN 300MG / 3 ML [Suspect]
     Active Substance: ENOXAPARIN
  4. ADDERALL [Concomitant]
     Active Substance: AMPHETAMINE ASPARTATE\AMPHETAMINE SULFATE\DEXTROAMPHETAMINE SACCHARATE\DEXTROAMPHETAMINE SULFATE
  5. CRESTOR [Concomitant]
     Active Substance: ROSUVASTATIN CALCIUM
  6. ENOXAPARIN [Concomitant]
     Active Substance: ENOXAPARIN
  7. MULTIVITAMIN [Concomitant]
     Active Substance: VITAMINS
  8. VENLAFAXINE [Concomitant]
     Active Substance: VENLAFAXINE HYDROCHLORIDE
  9. ACETAMIN [Concomitant]
     Active Substance: ACETAMINOPHEN
  10. SYNTHROID [Concomitant]
     Active Substance: LEVOTHYROXINE SODIUM
  11. TOPAMAX [Concomitant]
     Active Substance: TOPIRAMATE
  12. TRAMADOL HCL [Concomitant]
     Active Substance: TRAMADOL HYDROCHLORIDE
  13. VITAMIN E [Concomitant]
     Active Substance: .ALPHA.-TOCOPHEROL
  14. CALCIUM [Concomitant]
     Active Substance: CALCIUM
  15. METHOCARBAM [Concomitant]
     Active Substance: METHOCARBAMOL
  16. VITAMIN A [Concomitant]
     Active Substance: VITAMIN A
  17. VITAMIN D [Concomitant]
     Active Substance: VITAMIN D NOS

REACTIONS (2)
  - Product dose omission [None]
  - Pain [None]

NARRATIVE: CASE EVENT DATE: 20191202
